FAERS Safety Report 8790648 (Version 1)
Quarter: 2012Q4

REPORT INFORMATION
  Report Type: Spontaneous
  Country: US (occurrence: None)
  Receive Date: 20120912
  Receipt Date: 20120912
  Transmission Date: 20130627
  Serious: Yes (Other)
  Sender: FDA-Public Use
  Company Number: None

PATIENT
  Age: 61 Year
  Sex: Female
  Weight: 48.54 kg

DRUGS (1)
  1. TRAMADOL [Suspect]
     Indication: BACK PAIN
     Route: 048
     Dates: start: 20120815

REACTIONS (6)
  - Drug ineffective [None]
  - Hypoaesthesia [None]
  - Asthenia [None]
  - Hallucination [None]
  - Abdominal pain upper [None]
  - Vomiting [None]
